FAERS Safety Report 12059450 (Version 1)
Quarter: 2016Q1

REPORT INFORMATION
  Report Type: Spontaneous
  Country: US (occurrence: US)
  Receive Date: 20160210
  Receipt Date: 20160210
  Transmission Date: 20160526
  Serious: No
  Sender: FDA-Public Use
  Company Number: US-BAYER-2016-019422

PATIENT
  Age: 7 Year
  Sex: Male
  Weight: 30.39 kg

DRUGS (2)
  1. MIRALAX [Suspect]
     Active Substance: POLYETHYLENE GLYCOL 3350
     Indication: CONSTIPATION
     Dosage: 4 DF, ONCE
     Route: 048
     Dates: start: 20160129
  2. MIRALAX [Suspect]
     Active Substance: POLYETHYLENE GLYCOL 3350
     Indication: FREQUENT BOWEL MOVEMENTS
     Dosage: 1 DF, QD
     Route: 048
     Dates: start: 20160129

REACTIONS (2)
  - Drug administered to patient of inappropriate age [None]
  - Product use issue [None]

NARRATIVE: CASE EVENT DATE: 20160129
